FAERS Safety Report 23211434 (Version 1)
Quarter: 2023Q4

REPORT INFORMATION
  Report Type: Spontaneous
  Country: PL (occurrence: PL)
  Receive Date: 20231121
  Receipt Date: 20231121
  Transmission Date: 20240110
  Serious: Yes (Death)
  Sender: FDA-Public Use
  Company Number: PL-SA-SAC20231121000199

PATIENT
  Age: 55 Year
  Sex: Female

DRUGS (3)
  1. ZALTRAP [Suspect]
     Active Substance: ZIV-AFLIBERCEPT
     Dosage: 240 MG
     Route: 065
     Dates: start: 20230509
  2. ZALTRAP [Suspect]
     Active Substance: ZIV-AFLIBERCEPT
     Dosage: 232 MG
     Dates: start: 20230524
  3. ZALTRAP [Suspect]
     Active Substance: ZIV-AFLIBERCEPT
     Dosage: 228 MG
     Dates: start: 20230706

REACTIONS (1)
  - Disease progression [Fatal]
